FAERS Safety Report 10705136 (Version 1)
Quarter: 2015Q1

REPORT INFORMATION
  Report Type: Spontaneous
  Country: US (occurrence: None)
  Receive Date: 20150108
  Receipt Date: 20150108
  Transmission Date: 20150721
  Serious: Yes (Hospitalization)
  Sender: FDA-Public Use
  Company Number: US-H14001-1401880

PATIENT
  Age: 16 Year
  Sex: Male

DRUGS (1)
  1. AMLODIPINE [Suspect]
     Active Substance: AMLODIPINE BESYLATE
     Indication: PRODUCT USED FOR UNKNOWN INDICATION
     Dosage: 30 TABLETS, UNKNOWN

REACTIONS (6)
  - Nausea [None]
  - Blood pressure decreased [None]
  - Abdominal pain [None]
  - No therapeutic response [None]
  - Intentional overdose [None]
  - Arrhythmia [None]
